FAERS Safety Report 18293937 (Version 1)
Quarter: 2020Q3

REPORT INFORMATION
  Report Type: Spontaneous
  Country: US (occurrence: US)
  Receive Date: 20200922
  Receipt Date: 20200922
  Transmission Date: 20201103
  Serious: Yes (Death)
  Sender: FDA-Public Use
  Company Number: None

PATIENT
  Age: 62 Year
  Sex: Male

DRUGS (1)
  1. AXICABTAGENE CILOLEUCEL [Suspect]
     Active Substance: AXICABTAGENE CILOLEUCEL
     Indication: DIFFUSE LARGE B-CELL LYMPHOMA
     Dosage: ?          OTHER FREQUENCY:ONCE;?
     Route: 042
     Dates: start: 20200302, end: 20200302

REACTIONS (7)
  - Urine output decreased [None]
  - Blood lactic acid increased [None]
  - Pyrexia [None]
  - Tachycardia [None]
  - Sepsis [None]
  - Febrile neutropenia [None]
  - Disease progression [None]

NARRATIVE: CASE EVENT DATE: 20200405
